FAERS Safety Report 15632033 (Version 2)
Quarter: 2018Q4

REPORT INFORMATION
  Report Type: Spontaneous
  Country: US (occurrence: US)
  Receive Date: 20181119
  Receipt Date: 20181121
  Transmission Date: 20190205
  Serious: Yes (Hospitalization)
  Sender: FDA-Public Use
  Company Number: US-TEVA-2018-US-977686

PATIENT
  Age: 47 Year
  Sex: Male
  Weight: 82.1 kg

DRUGS (5)
  1. GABAPENTIN. [Suspect]
     Active Substance: GABAPENTIN
     Indication: PRODUCT USED FOR UNKNOWN INDICATION
     Route: 065
  2. REVATIO [Concomitant]
     Active Substance: SILDENAFIL CITRATE
  3. REMODULIN [Suspect]
     Active Substance: TREPROSTINIL
     Indication: PULMONARY ARTERIAL HYPERTENSION
     Dosage: 60 NG/KG/MIN OR 0.060MICROGRAM/KG
     Route: 058
     Dates: start: 20141114
  4. COUMADIN [Concomitant]
     Active Substance: WARFARIN SODIUM
  5. LETAIRIS [Concomitant]
     Active Substance: AMBRISENTAN

REACTIONS (2)
  - Unresponsive to stimuli [Unknown]
  - Overdose [Unknown]

NARRATIVE: CASE EVENT DATE: 20181026
